FAERS Safety Report 7361148-5 (Version None)
Quarter: 2011Q1

REPORT INFORMATION
  Report Type: 
  Country: None (occurrence: None)
  Receive Date: 20110318
  Receipt Date: 20110315
  Transmission Date: 20110831
  Serious: Yes (Other)
  Sender: FDA-Public Use
  Company Number: GB-ELI_LILLY_AND_COMPANY-GB201103004876

PATIENT
  Sex: Male

DRUGS (6)
  1. CELECOXIB [Concomitant]
     Dosage: 1 D/F, UNK
  2. INSULIN ASPART [Concomitant]
     Indication: DIABETES MELLITUS
     Dosage: 1 D/F, UNK
  3. CARBIMAZOLE [Concomitant]
     Dosage: 25 MG, UNK
  4. CIALIS [Suspect]
     Dosage: 20 MG, UNK
     Dates: start: 20110312
  5. ISOPHANE INSULIN [Concomitant]
     Indication: DIABETES MELLITUS
     Dosage: 1 D/F, UNK
  6. SIMVASTATIN [Concomitant]
     Dosage: 40 MG, UNK

REACTIONS (1)
  - BLINDNESS UNILATERAL [None]
